FAERS Safety Report 9123080 (Version 1)
Quarter: 2013Q1

REPORT INFORMATION
  Report Type: Spontaneous
  Country: DE (occurrence: DE)
  Receive Date: 20130227
  Receipt Date: 20130227
  Transmission Date: 20140127
  Serious: Yes (Other)
  Sender: FDA-Public Use
  Company Number: DE-ELI_LILLY_AND_COMPANY-DE201302005601

PATIENT
  Age: 47 Year
  Sex: Female

DRUGS (4)
  1. LISPRO REGLISPRO [Suspect]
     Indication: DIABETES MELLITUS
     Dosage: UNK
     Route: 058
  2. THYRONAJOD [Concomitant]
  3. CITALOPRAM [Concomitant]
  4. GLUCOPHAGE [Concomitant]

REACTIONS (4)
  - Neoplasm [Not Recovered/Not Resolved]
  - Epilepsy [Not Recovered/Not Resolved]
  - Amnesia [Not Recovered/Not Resolved]
  - Headache [Not Recovered/Not Resolved]
